FAERS Safety Report 4471977-3 (Version None)
Quarter: 2004Q4

REPORT INFORMATION
  Report Type: 
  Country: None (occurrence: None)
  Receive Date: 20041012
  Receipt Date: 20041004
  Transmission Date: 20050328
  Serious: Yes (Other)
  Sender: FDA-Public Use
  Company Number: PHEH2004US10789

PATIENT
  Age: 65 Year
  Sex: Male
  Weight: 95 kg

DRUGS (6)
  1. ZOMETA [Suspect]
     Dosage: 4 MG EVERY 4 WEEKS
  2. PREDNISONE [Concomitant]
  3. ALTACE [Concomitant]
  4. NORVASC [Concomitant]
  5. DIFLUCAN [Concomitant]
  6. THALIDOMIDE [Concomitant]

REACTIONS (3)
  - BONE DISORDER [None]
  - INFECTION [None]
  - PAIN IN JAW [None]
